FAERS Safety Report 21077499 (Version 2)
Quarter: 2022Q3

REPORT INFORMATION
  Report Type: Spontaneous
  Country: FR (occurrence: FR)
  Receive Date: 20220713
  Receipt Date: 20220724
  Transmission Date: 20221027
  Serious: Yes (Hospitalization, Other)
  Sender: FDA-Public Use
  Company Number: None

PATIENT
  Age: 87 Year
  Sex: Female
  Weight: 61 kg

DRUGS (2)
  1. ELIQUIS [Interacting]
     Active Substance: APIXABAN
     Indication: Congestive cardiomyopathy
     Route: 048
     Dates: start: 20220604, end: 20220620
  2. PAROXETINE [Interacting]
     Active Substance: PAROXETINE
     Indication: Depression
     Route: 048

REACTIONS (3)
  - Shock haemorrhagic [Recovered/Resolved]
  - Drug interaction [Recovered/Resolved]
  - Intentional product use issue [Unknown]

NARRATIVE: CASE EVENT DATE: 20220620
